FAERS Safety Report 10252003 (Version 1)
Quarter: 2014Q2

REPORT INFORMATION
  Report Type: Spontaneous
  Country: US (occurrence: None)
  Receive Date: 20140620
  Receipt Date: 20140620
  Transmission Date: 20141212
  Serious: No
  Sender: FDA-Public Use
  Company Number: None

PATIENT
  Age: 53 Year
  Sex: Female

DRUGS (1)
  1. XELJANZ [Suspect]
     Indication: RHEUMATOID ARTHRITIS
     Route: 048
     Dates: start: 20140506, end: 20140513

REACTIONS (5)
  - Myalgia [None]
  - Headache [None]
  - Peripheral swelling [None]
  - Ageusia [None]
  - Abdominal pain [None]
